FAERS Safety Report 24887808 (Version 7)
Quarter: 2025Q3

REPORT INFORMATION
  Report Type: Report from Study
  Country: US (occurrence: US)
  Receive Date: 20250127
  Receipt Date: 20250703
  Transmission Date: 20251021
  Serious: Yes (Hospitalization, Other)
  Sender: TAKEDA
  Company Number: US-TAKEDA-2025TUS002732

PATIENT
  Age: 65 Year
  Sex: Female
  Weight: 80.272 kg

DRUGS (3)
  1. VEDOLIZUMAB [Suspect]
     Active Substance: VEDOLIZUMAB
     Indication: Colitis ulcerative
  2. MIRALAX [Concomitant]
     Active Substance: POLYETHYLENE GLYCOL 3350
  3. TYLENOL [Concomitant]
     Active Substance: ACETAMINOPHEN
     Indication: Muscle spasms

REACTIONS (12)
  - Colitis [Not Recovered/Not Resolved]
  - Subdural haematoma [Recovered/Resolved]
  - Clostridium difficile infection [Recovered/Resolved]
  - Malaise [Not Recovered/Not Resolved]
  - Cellulitis [Recovering/Resolving]
  - Feeling abnormal [Not Recovered/Not Resolved]
  - Illness [Not Recovered/Not Resolved]
  - Abdominal pain [Recovering/Resolving]
  - Vomiting [Recovered/Resolved]
  - Nausea [Recovered/Resolved]
  - Headache [Recovered/Resolved]
  - Fatigue [Not Recovered/Not Resolved]

NARRATIVE: CASE EVENT DATE: 20250102
